FAERS Safety Report 13611796 (Version 3)
Quarter: 2017Q3

REPORT INFORMATION
  Report Type: Spontaneous
  Country: US (occurrence: US)
  Receive Date: 20170605
  Receipt Date: 20170719
  Transmission Date: 20171127
  Serious: Yes (Life-Threatening)
  Sender: FDA-Public Use
  Company Number: US-BAUSCH-BL-2017-018015

PATIENT
  Age: 52 Year
  Sex: Female
  Weight: 68.1 kg

DRUGS (23)
  1. TETRACAINE. [Suspect]
     Active Substance: TETRACAINE
     Indication: SKIN TEST
     Route: 058
     Dates: start: 20140424, end: 20140424
  2. VITAMIN C [Concomitant]
     Active Substance: ASCORBIC ACID
     Indication: PRODUCT USED FOR UNKNOWN INDICATION
  3. PULMICORT TURBUHALER [Concomitant]
     Active Substance: BUDESONIDE
     Indication: RETINAL OEDEMA
  4. ZYRTEC [Concomitant]
     Active Substance: CETIRIZINE HYDROCHLORIDE
     Indication: RETINAL OEDEMA
  5. MULTIVITAMIN [Concomitant]
     Active Substance: VITAMINS
     Indication: RETINAL OEDEMA
  6. BENOXINATE. [Suspect]
     Active Substance: BENOXINATE
     Route: 058
     Dates: start: 20140424
  7. VITAMIN D [Concomitant]
     Active Substance: CHOLECALCIFEROL
     Indication: RETINAL OEDEMA
  8. VITAMIN C [Concomitant]
     Active Substance: ASCORBIC ACID
     Indication: RETINAL OEDEMA
  9. LIDOCAINE. [Concomitant]
     Active Substance: LIDOCAINE
     Indication: LOCAL ANAESTHESIA
  10. RANIBIZUMAB. [Concomitant]
     Active Substance: RANIBIZUMAB
     Indication: RETINAL OEDEMA
  11. MULTIVITAMIN [Concomitant]
     Active Substance: VITAMINS
     Indication: PRODUCT USED FOR UNKNOWN INDICATION
  12. RANIBIZUMAB. [Concomitant]
     Active Substance: RANIBIZUMAB
     Indication: RETINAL VEIN OCCLUSION
     Route: 047
  13. BUPIVACAINE. [Concomitant]
     Active Substance: BUPIVACAINE
  14. BUPIVACAINE. [Concomitant]
     Active Substance: BUPIVACAINE
     Indication: LOCAL ANAESTHESIA
     Route: 061
  15. PULMICORT TURBUHALER [Concomitant]
     Active Substance: BUDESONIDE
     Indication: PRODUCT USED FOR UNKNOWN INDICATION
  16. ZYRTEC [Concomitant]
     Active Substance: CETIRIZINE HYDROCHLORIDE
     Indication: PRODUCT USED FOR UNKNOWN INDICATION
  17. TETRACAINE. [Suspect]
     Active Substance: TETRACAINE
     Indication: LOCAL ANAESTHESIA
     Dates: start: 20140424, end: 20140424
  18. BENOXINATE. [Suspect]
     Active Substance: BENOXINATE
     Indication: LOCAL ANAESTHESIA
     Dates: start: 20140424, end: 20140424
  19. VITAMIN D [Concomitant]
     Active Substance: CHOLECALCIFEROL
     Indication: PRODUCT USED FOR UNKNOWN INDICATION
  20. COUMADIN [Concomitant]
     Active Substance: WARFARIN SODIUM
     Indication: PRODUCT USED FOR UNKNOWN INDICATION
  21. COUMADIN [Concomitant]
     Active Substance: WARFARIN SODIUM
     Indication: RETINAL OEDEMA
  22. PROCAINE [Concomitant]
     Active Substance: PROCAINE
     Indication: RETINAL OEDEMA
  23. PROCAINE [Concomitant]
     Active Substance: PROCAINE
     Indication: PRODUCT USED FOR UNKNOWN INDICATION

REACTIONS (1)
  - Anaphylactic reaction [Recovered/Resolved]

NARRATIVE: CASE EVENT DATE: 20140424
